FAERS Safety Report 12745740 (Version 1)
Quarter: 2016Q3

REPORT INFORMATION
  Report Type: Spontaneous
  Country: US (occurrence: US)
  Receive Date: 20160915
  Receipt Date: 20160915
  Transmission Date: 20161109
  Serious: No
  Sender: FDA-Public Use
  Company Number: US-ADAPT PHARMA INC-2016ADP00065

PATIENT
  Sex: Male

DRUGS (3)
  1. NARCAN [Suspect]
     Active Substance: NALOXONE HYDROCHLORIDE
     Indication: OVERDOSE
     Dosage: 4MG, ONCE
     Route: 045
     Dates: start: 20160517, end: 20160517
  2. HEROIN [Suspect]
     Active Substance: DIACETYLMORPHINE
     Dosage: UNK, UNK
     Route: 065
  3. BENZODIAZEPINES [Suspect]
     Active Substance: BENZODIAZEPINE
     Dosage: UNK, UNK
     Route: 065

REACTIONS (2)
  - Drug withdrawal syndrome [Unknown]
  - Overdose [None]

NARRATIVE: CASE EVENT DATE: 20160517
